FAERS Safety Report 5607052-1 (Version None)
Quarter: 2008Q1

REPORT INFORMATION
  Report Type: 
  Country: None (occurrence: None)
  Receive Date: 20080129
  Receipt Date: 20080117
  Transmission Date: 20080703
  Serious: Yes (Death, Other)
  Sender: FDA-Public Use
  Company Number: US-PFIZER INC-2007105663

PATIENT
  Sex: Female
  Weight: 133.8 kg

DRUGS (26)
  1. CHANTIX [Suspect]
     Indication: SMOKING CESSATION THERAPY
     Route: 048
     Dates: start: 20071124, end: 20071204
  2. WARFARIN SODIUM [Interacting]
  3. COMBIVENT [Concomitant]
     Route: 055
  4. CYMBALTA [Concomitant]
  5. NEURONTIN [Concomitant]
  6. NEXIUM [Concomitant]
  7. KLOR-CON [Concomitant]
  8. MAGNESIUM GLUCONATE [Concomitant]
  9. ATENOLOL [Concomitant]
  10. ISOSORBIDE MONONITRATE [Concomitant]
  11. FOSINOPRIL SODIUM [Concomitant]
  12. CRESTOR [Concomitant]
  13. ZETIA [Concomitant]
  14. OMEGA-3 MARINE TRIGLYCERIDES [Concomitant]
  15. CALCIUM WITH VITAMIN D [Concomitant]
  16. DEMADEX [Concomitant]
  17. ZAROXOLYN [Concomitant]
  18. AMBIEN [Concomitant]
  19. AMITRIPTYLINE HCL [Concomitant]
  20. METFORMIN HCL [Concomitant]
  21. LANTUS [Concomitant]
  22. HUMALOG [Concomitant]
  23. IBANDRONATE SODIUM [Concomitant]
  24. SYNTHROID [Concomitant]
  25. NITROGLYCERIN [Concomitant]
  26. ALL OTHER THERAPEUTIC PRODUCTS [Concomitant]

REACTIONS (3)
  - DEATH [None]
  - DRUG INTERACTION [None]
  - INTERNATIONAL NORMALISED RATIO DECREASED [None]
